FAERS Safety Report 8892401 (Version 2)
Quarter: 2012Q4

REPORT INFORMATION
  Report Type: 
  Country: US (occurrence: US)
  Receive Date: 20121107
  Receipt Date: 20121121
  Transmission Date: 20130627
  Serious: Yes (Hospitalization, Congenital Anomaly)
  Sender: FDA-Public Use
  Company Number: US-GLAXOSMITHKLINE-A1000161A

PATIENT
  Age: 0 Year
  Sex: Male
  Weight: 3.2 kg

DRUGS (1)
  1. PAXIL [Suspect]
     Indication: PRODUCT USED FOR UNKNOWN INDICATION
     Route: 064
     Dates: start: 20030404, end: 20030824

REACTIONS (8)
  - Hypotonia [Unknown]
  - Moebius II syndrome [Unknown]
  - Strabismus [Unknown]
  - Eye movement disorder [Unknown]
  - Nystagmus [Unknown]
  - Moebius II syndrome [Unknown]
  - Developmental delay [Unknown]
  - Foetal exposure during pregnancy [Unknown]
